FAERS Safety Report 10663287 (Version 1)
Quarter: 2014Q4

REPORT INFORMATION
  Report Type: Spontaneous
  Country: IT (occurrence: IT)
  Receive Date: 20141218
  Receipt Date: 20141218
  Transmission Date: 20150529
  Serious: Yes (Hospitalization)
  Sender: FDA-Public Use
  Company Number: IT-BAUSCH-BL-2014-010746

PATIENT
  Age: 26 Year
  Sex: Female

DRUGS (3)
  1. FLUVOXAMINE MALEATE. [Suspect]
     Active Substance: FLUVOXAMINE MALEATE
     Indication: INTENTIONAL SELF-INJURY
     Dosage: SEP. DOSAGES / INTERVAL: 1 IN 1 TOTAL
     Dates: start: 20141202, end: 20141202
  2. EN [Suspect]
     Active Substance: DELORAZEPAM
     Indication: INTENTIONAL SELF-INJURY
     Dosage: SEP. DOSAGES / INTERVAL: 1 IN 1 TOTAL
     Route: 048
     Dates: start: 20141202, end: 20141202
  3. ZOLPIDEM TARTRATE. [Suspect]
     Active Substance: ZOLPIDEM TARTRATE
     Indication: INTENTIONAL SELF-INJURY
     Dosage: SEP. DOSAGES / INTERVAL: 1 IN 1 TOTAL
     Route: 048
     Dates: start: 20141202, end: 20141202

REACTIONS (5)
  - Drug abuse [Recovered/Resolved]
  - Intentional overdose [Recovered/Resolved]
  - Gaze palsy [Recovered/Resolved]
  - Tremor [Recovered/Resolved]
  - Anxiety [Recovered/Resolved]

NARRATIVE: CASE EVENT DATE: 20141202
